FAERS Safety Report 8793607 (Version 1)
Quarter: 2012Q4

REPORT INFORMATION
  Report Type: 
  Country: BR (occurrence: BR)
  Receive Date: 20120917
  Receipt Date: 20120917
  Transmission Date: 20130627
  Serious: Yes (Other)
  Sender: FDA-Public Use
  Company Number: BR-GLAXOSMITHKLINE-B0826221A

PATIENT
  Age: 1 Year
  Sex: Male
  Weight: 14 kg

DRUGS (6)
  1. SERETIDE [Suspect]
     Indication: ASTHMA
     Dosage: 1PUFF Twice per day
     Route: 055
     Dates: start: 20120621, end: 20120902
  2. BACTERIAL LYSATE [Suspect]
     Dosage: 1TAB Per day
     Dates: start: 20120817
  3. UNKNOWN [Suspect]
     Dosage: 3ML Twice per day
     Dates: start: 20120817, end: 20120819
  4. SINGULAIR [Concomitant]
     Route: 063
     Dates: start: 20120616
  5. PURAN T4 [Concomitant]
     Dosage: 50MG Per day
     Route: 063
     Dates: start: 2002
  6. LEVONORGESTREL + OESTRADIOL [Concomitant]
     Dosage: 1TAB Per day
     Route: 063
     Dates: start: 2011

REACTIONS (2)
  - Pneumonia [Not Recovered/Not Resolved]
  - Bronchitis [Recovering/Resolving]
